FAERS Safety Report 19710557 (Version 3)
Quarter: 2021Q3

REPORT INFORMATION
  Report Type: Report from Study
  Country: FR (occurrence: FR)
  Receive Date: 20210816
  Receipt Date: 20210929
  Transmission Date: 20211014
  Serious: Yes (Other)
  Sender: FDA-Public Use
  Company Number: FR-PFIZER INC-202100994304

PATIENT
  Weight: 75.5 kg

DRUGS (6)
  1. BACTRIM [Concomitant]
     Active Substance: SULFAMETHOXAZOLE\TRIMETHOPRIM
     Indication: INFECTION PROPHYLAXIS
     Dosage: 800 MG
     Dates: start: 20210618
  2. GEMTUZUMAB OZOGAMICIN [Suspect]
     Active Substance: GEMTUZUMAB OZOGAMICIN
     Indication: ACUTE MYELOID LEUKAEMIA
     Dosage: 15 MG, EVERY 10 DAYS
     Route: 042
     Dates: start: 20210620
  3. MITOXANTRONE [Suspect]
     Active Substance: MITOXANTRONE HYDROCHLORIDE
     Indication: ACUTE MYELOID LEUKAEMIA
     Dosage: 92 MG/M2, EVERY 10 DAYS
     Route: 042
     Dates: start: 20210617
  4. NOXAFIL [Concomitant]
     Active Substance: POSACONAZOLE
     Indication: INFECTION PROPHYLAXIS
     Dosage: 300 MG, 1X/DAY
     Dates: start: 20210617
  5. CERAZETTE PILULE [Concomitant]
     Indication: CONTRACEPTION
     Dosage: 0.7 MG, 1X/DAY
     Dates: start: 20210617
  6. MYCOSTATINE [Concomitant]
     Active Substance: NYSTATIN
     Indication: INFECTION PROPHYLAXIS
     Dosage: 18 ML, 2X/DAY
     Dates: start: 20210617

REACTIONS (1)
  - Ejection fraction decreased [Not Recovered/Not Resolved]

NARRATIVE: CASE EVENT DATE: 20210802
